FAERS Safety Report 22093569 (Version 2)
Quarter: 2023Q1

REPORT INFORMATION
  Report Type: Spontaneous
  Country: AT (occurrence: AT)
  Receive Date: 20230314
  Receipt Date: 20230324
  Transmission Date: 20230417
  Serious: Yes (Other)
  Sender: FDA-Public Use
  Company Number: None

PATIENT
  Age: 25 Year
  Sex: Female

DRUGS (1)
  1. PROGESTERONE [Suspect]
     Active Substance: PROGESTERONE
     Indication: Menstrual disorder
     Dosage: PATIENTIN HAT TABLETTEN NICHT NOCH EINMAL EINGENOMMEN, ALSO ABGESETZT.
     Dates: start: 20230222

REACTIONS (6)
  - Delirium [Recovered/Resolved]
  - Disturbance in attention [Recovered/Resolved]
  - Miosis [Recovered/Resolved]
  - Abnormal dreams [Recovered/Resolved]
  - Feeling drunk [Recovered/Resolved]
  - Confusional state [Recovered/Resolved]

NARRATIVE: CASE EVENT DATE: 20230222
